FAERS Safety Report 13386909 (Version 1)
Quarter: 2017Q1

REPORT INFORMATION
  Report Type: Spontaneous
  Country: AR (occurrence: AR)
  Receive Date: 20170330
  Receipt Date: 20170330
  Transmission Date: 20170429
  Serious: Yes (Other)
  Sender: FDA-Public Use
  Company Number: AR-SEATTLE GENETICS-2017SGN00808

PATIENT

DRUGS (1)
  1. ADCETRIS [Suspect]
     Active Substance: BRENTUXIMAB VEDOTIN
     Indication: HODGKIN^S DISEASE
     Dosage: 104 MG, UNK
     Route: 042
     Dates: start: 20160920

REACTIONS (2)
  - Alopecia [Unknown]
  - Tachycardia [Unknown]
